FAERS Safety Report 11388031 (Version 1)
Quarter: 2015Q3

REPORT INFORMATION
  Report Type: Spontaneous
  Country: US (occurrence: US)
  Receive Date: 20150817
  Receipt Date: 20150817
  Transmission Date: 20151125
  Serious: Yes (Other)
  Sender: FDA-Public Use
  Company Number: CHPA2015US009495

PATIENT
  Age: 69 Year
  Sex: Female

DRUGS (3)
  1. VOLTAREN [Suspect]
     Active Substance: DICLOFENAC SODIUM
     Indication: NEUROPATHY PERIPHERAL
  2. VOLTAREN [Suspect]
     Active Substance: DICLOFENAC SODIUM
     Indication: EXOSTOSIS
     Dosage: A LITTLE BIT, QD OR BID PRN TO ARMS, SHOULDERS, FOOT, AND  NECK
     Route: 061
  3. VOLTAREN [Suspect]
     Active Substance: DICLOFENAC SODIUM
     Indication: WRIST FRACTURE
     Dosage: A LITTLE BIT, BID TO TID TO WRIST
     Route: 061
     Dates: start: 20150811

REACTIONS (10)
  - Arthralgia [Unknown]
  - Feeling abnormal [Unknown]
  - Pain [Unknown]
  - Nausea [Unknown]
  - Wrong technique in product usage process [Unknown]
  - Wrist fracture [Not Recovered/Not Resolved]
  - Inappropriate schedule of drug administration [Unknown]
  - Neuropathy peripheral [Unknown]
  - Drug administered at inappropriate site [Unknown]
  - Product use issue [Unknown]

NARRATIVE: CASE EVENT DATE: 20150622
